FAERS Safety Report 10740087 (Version 1)
Quarter: 2015Q1

REPORT INFORMATION
  Report Type: Spontaneous
  Country: FR (occurrence: FR)
  Receive Date: 20150127
  Receipt Date: 20150127
  Transmission Date: 20150721
  Serious: Yes (Hospitalization, Disabling, Other)
  Sender: FDA-Public Use
  Company Number: FR-ROCHE-1514628

PATIENT
  Age: 89 Year
  Sex: Female
  Weight: 67 kg

DRUGS (1)
  1. XELODA [Suspect]
     Active Substance: CAPECITABINE
     Indication: COLON CANCER
     Dosage: DATE OF MOST RECENT DOSE PRIOR TO EVENT- 23/DEC/2013
     Route: 048
     Dates: start: 20130718, end: 201405

REACTIONS (6)
  - Transient ischaemic attack [Unknown]
  - Vertigo [Unknown]
  - Skin fissures [Recovered/Resolved]
  - Dry eye [Not Recovered/Not Resolved]
  - Photophobia [Not Recovered/Not Resolved]
  - Blood pressure increased [Unknown]

NARRATIVE: CASE EVENT DATE: 20150101
